FAERS Safety Report 16680507 (Version 1)
Quarter: 2019Q3

REPORT INFORMATION
  Report Type: Spontaneous
  Country: US (occurrence: US)
  Receive Date: 20190807
  Receipt Date: 20190807
  Transmission Date: 20191004
  Serious: No
  Sender: FDA-Public Use
  Company Number: US-ASTRAZENECA-2019SF02492

PATIENT
  Sex: Female
  Weight: 125.6 kg

DRUGS (2)
  1. TUDORZA PRESSAIR [Suspect]
     Active Substance: ACLIDINIUM BROMIDE
     Indication: CHRONIC OBSTRUCTIVE PULMONARY DISEASE
     Route: 055
     Dates: start: 2018
  2. SYMBICORT [Suspect]
     Active Substance: BUDESONIDE\FORMOTEROL FUMARATE DIHYDRATE
     Indication: CHRONIC OBSTRUCTIVE PULMONARY DISEASE
     Dosage: TWO TIMES A DAY
     Route: 055
     Dates: start: 2018

REACTIONS (8)
  - Feeling abnormal [Unknown]
  - Time perception altered [Unknown]
  - Product dose omission [Unknown]
  - Intentional product misuse [Unknown]
  - Productive cough [Unknown]
  - Memory impairment [Unknown]
  - Device issue [Unknown]
  - Nasal congestion [Unknown]
